FAERS Safety Report 24278071 (Version 1)
Quarter: 2024Q3

REPORT INFORMATION
  Report Type: Other
  Country: US (occurrence: US)
  Receive Date: 20240903
  Receipt Date: 20240903
  Transmission Date: 20241016
  Serious: Yes (Life-Threatening)
  Sender: B BRAUN
  Company Number: US-B.Braun Medical Inc.-2161111

PATIENT
  Age: 87 Year
  Sex: Male

DRUGS (6)
  1. DEXTROSE\LIDOCAINE HYDROCHLORIDE [Suspect]
     Active Substance: DEXTROSE\LIDOCAINE HYDROCHLORIDE
     Indication: Ventricular tachycardia
     Route: 042
  2. SOTALOL [Suspect]
     Active Substance: SOTALOL\SOTALOL HYDROCHLORIDE
  3. AMIODARONE [Concomitant]
     Active Substance: AMIODARONE
  4. DRONEDARONE [Concomitant]
     Active Substance: DRONEDARONE
  5. RIVAROXABAN [Concomitant]
     Active Substance: RIVAROXABAN
  6. MEXILETINE [Suspect]
     Active Substance: MEXILETINE

REACTIONS (1)
  - Drug ineffective [Unknown]
